FAERS Safety Report 7815077-0 (Version None)
Quarter: 2011Q4

REPORT INFORMATION
  Report Type: 
  Country: None (occurrence: None)
  Receive Date: 20111014
  Receipt Date: 20111014
  Transmission Date: 20120403
  Serious: Yes (Life-Threatening, Hospitalization, Other)
  Sender: FDA-Public Use
  Company Number: None

PATIENT
  Sex: Female

DRUGS (1)
  1. NORETHINDRONE [Suspect]
     Indication: OESTROGEN THERAPY
     Dosage: HALF TABLET
     Route: 048
     Dates: start: 20110815, end: 20110824

REACTIONS (2)
  - CHEST PAIN [None]
  - HEADACHE [None]
